FAERS Safety Report 8626719 (Version 2)
Quarter: 2013Q1

REPORT INFORMATION
  Report Type: Spontaneous
  Country: US (occurrence: None)
  Receive Date: 20120607
  Receipt Date: 20121113
  Transmission Date: 20140127
  Serious: Yes (Other)
  Sender: FDA-Public Use
  Company Number: DKLU1081350

PATIENT
  Age: 23 Year
  Sex: Male
  Weight: 72.5 kg

DRUGS (1)
  1. ONFI [Suspect]
     Indication: PRODUCT USED FOR UNKNOWN INDICATION

REACTIONS (9)
  - Abasia [None]
  - Convulsion [None]
  - Grip strength decreased [None]
  - Screaming [None]
  - Feeling drunk [None]
  - Condition aggravated [None]
  - Product substitution issue [None]
  - Increased appetite [None]
  - Insomnia [None]
